FAERS Safety Report 6460543-6 (Version None)
Quarter: 2009Q4

REPORT INFORMATION
  Report Type: 
  Country: None (occurrence: None)
  Receive Date: 20091125
  Receipt Date: 20091125
  Transmission Date: 20100525
  Serious: Yes (Life-Threatening, Hospitalization)
  Sender: FDA-Public Use
  Company Number: None

PATIENT
  Age: 35 Year
  Sex: Male
  Weight: 71.5 kg

DRUGS (7)
  1. CHLORPROMAZINE [Suspect]
     Indication: PERSONALITY DISORDER
     Dosage: 100 MG BID PO YEARS
     Route: 048
  2. BENXTROPINE -CONGENTIN- [Suspect]
     Dosage: 1MG BID PO YEARS
     Route: 048
  3. THORAZINE [Concomitant]
  4. COGENTIN [Concomitant]
  5. REMERON [Concomitant]
  6. CELEBREX [Concomitant]
  7. NEXIUM [Concomitant]

REACTIONS (1)
  - NEUROLEPTIC MALIGNANT SYNDROME [None]
